FAERS Safety Report 6611357-5 (Version None)
Quarter: 2010Q1

REPORT INFORMATION
  Report Type: 
  Country: None (occurrence: None)
  Receive Date: 20100303
  Receipt Date: 20100224
  Transmission Date: 20100710
  Serious: Yes (Death, Hospitalization)
  Sender: FDA-Public Use
  Company Number: NZ-CELGENEUS-118-21880-09122305

PATIENT
  Sex: Female
  Weight: 61 kg

DRUGS (13)
  1. REVLIMID [Suspect]
     Indication: MULTIPLE MYELOMA
     Route: 048
     Dates: start: 20091217, end: 20091228
  2. DEXAMETHASONE [Suspect]
     Indication: MULTIPLE MYELOMA
     Route: 048
     Dates: start: 20091225, end: 20091228
  3. DEXAMETHASONE [Suspect]
     Route: 048
     Dates: start: 20091217, end: 20091220
  4. PANTOPRAZOLE [Concomitant]
     Indication: OESOPHAGEAL ULCER
     Route: 048
     Dates: start: 20050218
  5. MULTI-VITAMINS [Concomitant]
     Indication: SUPPLEMENTATION THERAPY
     Route: 048
  6. LEVOTHYROXINE SODIUM [Concomitant]
     Indication: HYPOTHYROIDISM
     Route: 048
     Dates: start: 20061013
  7. CHOLECALCIFEROL [Concomitant]
     Indication: DRUG USE FOR UNKNOWN INDICATION
     Route: 048
     Dates: start: 20070601
  8. PARACETAMOL [Concomitant]
     Indication: BACK PAIN
     Route: 048
     Dates: start: 20090601
  9. CALCIUM SANDOZ [Concomitant]
     Route: 048
     Dates: start: 20070601
  10. SIMVASTATIN [Concomitant]
     Route: 048
     Dates: start: 20050201
  11. CARTIA XT [Concomitant]
     Route: 048
     Dates: start: 20050101
  12. NORTRIPTYLINE HCL [Concomitant]
     Indication: MOOD SWINGS
     Route: 048
  13. PAMIDRONATE DISODIUM [Concomitant]
     Route: 051
     Dates: start: 20070605

REACTIONS (2)
  - CONFUSIONAL STATE [None]
  - MULTIPLE MYELOMA [None]
